FAERS Safety Report 6418734-6 (Version None)
Quarter: 2009Q4

REPORT INFORMATION
  Report Type: 
  Country: None (occurrence: None)
  Receive Date: 20091026
  Receipt Date: 20091014
  Transmission Date: 20100525
  Serious: Yes (Death)
  Sender: FDA-Public Use
  Company Number: 2009AC000231

PATIENT
  Age: 71 Year
  Sex: Male
  Weight: 61.2356 kg

DRUGS (9)
  1. DIGOXIN [Suspect]
     Indication: CARDIAC FAILURE CHRONIC
     Dosage: 0.25 MG;PO
     Route: 048
  2. ALLOPURINOL [Concomitant]
  3. COUMADIN [Concomitant]
  4. FISH OIL [Concomitant]
  5. FUROSEMIDE [Concomitant]
  6. METOPROLOL [Concomitant]
  7. GLIPIZIDE [Concomitant]
  8. PROPOXYPHONE [Concomitant]
  9. SIMVASTATIN [Concomitant]

REACTIONS (7)
  - ANHEDONIA [None]
  - ARRHYTHMIA [None]
  - MENTAL DISORDER [None]
  - MULTIPLE INJURIES [None]
  - PAIN [None]
  - THERAPEUTIC AGENT TOXICITY [None]
  - UNEVALUABLE EVENT [None]
